FAERS Safety Report 8297189-3 (Version None)
Quarter: 2012Q2

REPORT INFORMATION
  Report Type: 
  Country: None (occurrence: None)
  Receive Date: 20120419
  Receipt Date: 20120413
  Transmission Date: 20120825
  Serious: No
  Sender: FDA-Public Use
  Company Number: US-PFIZER INC-2012071099

PATIENT
  Sex: Female
  Weight: 96.145 kg

DRUGS (5)
  1. SUTENT [Suspect]
     Indication: RENAL CANCER
     Dosage: 50 MG, 1X/DAY
     Route: 048
     Dates: start: 20120316, end: 20120101
  2. SUTENT [Suspect]
     Dosage: 50 MG, 28 DAYS
     Route: 048
     Dates: start: 20120201, end: 20120101
  3. TYLENOL (CAPLET) [Concomitant]
     Indication: PAIN
     Dosage: UNK
  4. SUTENT [Suspect]
     Indication: METASTATIC RENAL CELL CARCINOMA
     Dosage: 50 MG, 1X/DAY (28 DAYS CYCLE)
     Route: 048
     Dates: start: 20120130, end: 20120301
  5. SUTENT [Suspect]
     Dosage: 25 MG, UNK
     Dates: start: 20120101

REACTIONS (15)
  - VULVOVAGINAL MYCOTIC INFECTION [None]
  - DYSGEUSIA [None]
  - EPIGASTRIC DISCOMFORT [None]
  - DEPRESSION [None]
  - DECREASED APPETITE [None]
  - ASTHENIA [None]
  - VAGINAL INFECTION [None]
  - HEADACHE [None]
  - ORAL PAIN [None]
  - FATIGUE [None]
  - CHROMATURIA [None]
  - MUCOSAL INFLAMMATION [None]
  - NAUSEA [None]
  - ORAL FUNGAL INFECTION [None]
  - STOMATITIS [None]
